FAERS Safety Report 5075928-2 (Version None)
Quarter: 2006Q3

REPORT INFORMATION
  Report Type: 
  Country: None (occurrence: None)
  Receive Date: 20060808
  Receipt Date: 20060808
  Transmission Date: 20061208
  Serious: Yes (Other)
  Sender: FDA-Public Use
  Company Number: None

PATIENT
  Sex: Female

DRUGS (2)
  1. PAROXETINE HCL [Suspect]
     Dosage: 40 MG BID
     Dates: start: 20060206, end: 20060206
  2. ALPRAZOLAM [Suspect]
     Dosage: 1 MG QID

REACTIONS (4)
  - ORAL FUNGAL INFECTION [None]
  - SWOLLEN TONGUE [None]
  - URTICARIA [None]
  - VULVOVAGINAL MYCOTIC INFECTION [None]
